FAERS Safety Report 10761495 (Version 1)
Quarter: 2015Q1

REPORT INFORMATION
  Report Type: Spontaneous
  Country: US (occurrence: US)
  Receive Date: 20150204
  Receipt Date: 20150204
  Transmission Date: 20150721
  Serious: No
  Sender: FDA-Public Use
  Company Number: US-SHIRE-US201500849

PATIENT

DRUGS (1)
  1. LIALDA [Suspect]
     Active Substance: MESALAMINE
     Indication: BREAST FEEDING
     Dosage: UNK, UNKNOWN
     Route: 048

REACTIONS (1)
  - Breast feeding [Not Recovered/Not Resolved]
